FAERS Safety Report 22118723 (Version 1)
Quarter: 2023Q1

REPORT INFORMATION
  Report Type: Report from Study
  Country: RO (occurrence: RO)
  Receive Date: 20230321
  Receipt Date: 20230321
  Transmission Date: 20230418
  Serious: Yes (Other)
  Sender: FDA-Public Use
  Company Number: RO-ABBVIE-4332181

PATIENT
  Age: 73 Year
  Sex: Male

DRUGS (2)
  1. CARBIDOPA\LEVODOPA [Suspect]
     Active Substance: CARBIDOPA\LEVODOPA
     Indication: Parkinson^s disease
     Dosage: DM=7.00 DC=3.20 ED=1.50 NRED=0; DMN=0.00 DCN=0.00 EDN=0.00 NREDN=0??FIRST ADMIN DATE:03 MAR 2023
     Route: 050
  2. CARBIDOPA\LEVODOPA [Suspect]
     Active Substance: CARBIDOPA\LEVODOPA

REACTIONS (10)
  - Clostridial sepsis [Recovering/Resolving]
  - General physical health deterioration [Recovering/Resolving]
  - Flatulence [Recovering/Resolving]
  - Clostridium difficile colitis [Recovering/Resolving]
  - Abdominal distension [Recovering/Resolving]
  - Oxygen saturation decreased [Recovering/Resolving]
  - Clostridium difficile infection [Recovering/Resolving]
  - Apathy [Unknown]
  - Blood pressure decreased [Recovering/Resolving]
  - Blood glucose abnormal [Recovering/Resolving]

NARRATIVE: CASE EVENT DATE: 20230301
